FAERS Safety Report 16908146 (Version 2)
Quarter: 2020Q3

REPORT INFORMATION
  Report Type: Spontaneous
  Country: US (occurrence: US)
  Receive Date: 20191011
  Receipt Date: 20200727
  Transmission Date: 20201102
  Serious: Yes (Hospitalization, Other)
  Sender: FDA-Public Use
  Company Number: US-GILEAD-2019-0432211

PATIENT
  Age: 60 Year
  Sex: Male
  Weight: 99.7 kg

DRUGS (10)
  1. ODEFSEY [Concomitant]
     Active Substance: EMTRICITABINE\RILPIVIRINE HYDROCHLORIDE\TENOFOVIR ALAFENAMIDE FUMARATE
     Route: 065
  2. ATRIPLA [Suspect]
     Active Substance: EFAVIRENZ\EMTRICITABINE\TENOFOVIR DISOPROXIL FUMARATE
     Dosage: UNK
     Route: 065
     Dates: start: 2017
  3. SUSTIVA [Concomitant]
     Active Substance: EFAVIRENZ
  4. VALIUM [Concomitant]
     Active Substance: DIAZEPAM
  5. ATRIPLA [Suspect]
     Active Substance: EFAVIRENZ\EMTRICITABINE\TENOFOVIR DISOPROXIL FUMARATE
     Indication: HIV TEST POSITIVE
     Dosage: UNK
     Route: 065
  6. ATRIPLA [Suspect]
     Active Substance: EFAVIRENZ\EMTRICITABINE\TENOFOVIR DISOPROXIL FUMARATE
     Dosage: UNK
     Route: 065
     Dates: start: 201901
  7. GABAPENTIN. [Concomitant]
     Active Substance: GABAPENTIN
  8. COMPLERA [Suspect]
     Active Substance: EMTRICITABINE\RILPIVIRINE HYDROCHLORIDE\TENOFOVIR DISOPROXIL FUMARATE
     Indication: HIV TEST POSITIVE
     Dosage: UNK
     Route: 065
  9. LORAZEPAM. [Concomitant]
     Active Substance: LORAZEPAM
  10. TRAZODONE [Concomitant]
     Active Substance: TRAZODONE HYDROCHLORIDE

REACTIONS (19)
  - Poisoning [Unknown]
  - Mental disorder [Unknown]
  - Gingival bleeding [Not Recovered/Not Resolved]
  - Poor dental condition [Unknown]
  - Oral disorder [Unknown]
  - Genital burning sensation [Unknown]
  - Atrial fibrillation [Unknown]
  - Abnormal dreams [Unknown]
  - Flushing [Unknown]
  - Feeling hot [Unknown]
  - Nervous system disorder [Not Recovered/Not Resolved]
  - Myocardial infarction [Unknown]
  - Genital rash [Unknown]
  - Hypertension [Not Recovered/Not Resolved]
  - Nightmare [Unknown]
  - Emotional disorder [Unknown]
  - Skin burning sensation [Unknown]
  - Burn oral cavity [Unknown]
  - Burning sensation [Unknown]

NARRATIVE: CASE EVENT DATE: 20190929
